FAERS Safety Report 7543638-5 (Version None)
Quarter: 2011Q2

REPORT INFORMATION
  Report Type: 
  Country: None (occurrence: None)
  Receive Date: 20110613
  Receipt Date: 20030127
  Transmission Date: 20111010
  Serious: Yes (Death, Hospitalization)
  Sender: FDA-Public Use
  Company Number: PHHO2003JP00546

PATIENT
  Sex: Female
  Weight: 66 kg

DRUGS (1)
  1. LOCHOLEST [Suspect]
     Indication: HYPERCHOLESTEROLAEMIA
     Dosage: 20 MG, QD
     Route: 048
     Dates: start: 20000918, end: 20020424

REACTIONS (2)
  - VARICOSE VEIN [None]
  - NEOPLASM MALIGNANT [None]
